FAERS Safety Report 15140529 (Version 7)
Quarter: 2019Q1

REPORT INFORMATION
  Report Type: Report from Study
  Country: BE (occurrence: BE)
  Receive Date: 20180713
  Receipt Date: 20190130
  Transmission Date: 20190417
  Serious: Yes (Other)
  Sender: FDA-Public Use
  Company Number: BE-CELGENEUS-BEL-20180701086

PATIENT
  Age: 22 Year
  Sex: Male
  Weight: 112 kg

DRUGS (5)
  1. TRAZODONE [Concomitant]
     Active Substance: TRAZODONE HYDROCHLORIDE
     Indication: INSOMNIA
     Dosage: 100MG
     Route: 065
     Dates: start: 20180116
  2. RISPERDAL [Concomitant]
     Active Substance: RISPERIDONE
     Dosage: 3 MG
     Route: 065
     Dates: start: 20180626
  3. OTEZLA [Suspect]
     Active Substance: APREMILAST
     Indication: PSORIASIS
     Dosage: 60 MG
     Route: 048
     Dates: start: 20180120, end: 20180629
  4. SIPRALEXA [Concomitant]
     Active Substance: ESCITALOPRAM OXALATE
     Indication: DISTURBANCE IN SOCIAL BEHAVIOUR
     Dosage: 20 MILLIGRAM
     Route: 065
     Dates: start: 201507
  5. RISPERDAL [Concomitant]
     Active Substance: RISPERIDONE
     Indication: DISTURBANCE IN SOCIAL BEHAVIOUR
     Dosage: 2 MG
     Route: 065
     Dates: start: 200501, end: 20180626

REACTIONS (1)
  - Suicidal ideation [Recovered/Resolved]

NARRATIVE: CASE EVENT DATE: 20180625
